FAERS Safety Report 24810819 (Version 1)
Quarter: 2025Q1

REPORT INFORMATION
  Report Type: Spontaneous
  Country: US (occurrence: None)
  Receive Date: 20250104
  Receipt Date: 20250104
  Transmission Date: 20250409
  Serious: Yes (Other)
  Sender: FDA-CTU
  Company Number: None

PATIENT
  Age: 55 Year
  Sex: Female

DRUGS (1)
  1. TRINTELLIX [Suspect]
     Active Substance: VORTIOXETINE HYDROBROMIDE
     Indication: Depression
     Dosage: 1 TABLET DAILY ORAL
     Route: 048
     Dates: start: 20241120

REACTIONS (3)
  - Urinary incontinence [None]
  - Micturition urgency [None]
  - Urinary tract discomfort [None]

NARRATIVE: CASE EVENT DATE: 20241225
